FAERS Safety Report 6903003-8 (Version None)
Quarter: 2010Q3

REPORT INFORMATION
  Report Type: 
  Country: None (occurrence: None)
  Receive Date: 20100803
  Receipt Date: 20080923
  Transmission Date: 20110219
  Serious: No
  Sender: FDA-Public Use
  Company Number: US-PFIZER INC-2008059455

PATIENT
  Sex: Male
  Weight: 62.7 kg

DRUGS (11)
  1. LYRICA [Suspect]
     Indication: DIABETIC NEUROPATHY
     Dates: start: 20080601, end: 20080712
  2. LYRICA [Suspect]
     Indication: PAIN
  3. GABAPENTIN [Suspect]
     Dates: start: 20080501
  4. ANALGESICS [Concomitant]
  5. METFORMIN HCL [Concomitant]
  6. DESVENLAFAXINE [Concomitant]
  7. LISINOPRIL [Concomitant]
  8. CENTRUM [Concomitant]
  9. VITAMIN TAB [Concomitant]
  10. ACETYLSALICYLIC ACID SRT [Concomitant]
  11. GALENIC /IRON/VITAMINS NOS/FOLIC ACID/ [Concomitant]

REACTIONS (8)
  - BLISTER [None]
  - BLOOD GLUCOSE INCREASED [None]
  - DYSPNOEA [None]
  - HYPOAESTHESIA [None]
  - MUSCLE SPASMS [None]
  - PAIN IN EXTREMITY [None]
  - PARAESTHESIA [None]
  - SLEEP DISORDER [None]
